FAERS Safety Report 20429612 (Version 1)
Quarter: 2022Q1

REPORT INFORMATION
  Report Type: Report from Study
  Country: FR (occurrence: FR)
  Receive Date: 20220204
  Receipt Date: 20220204
  Transmission Date: 20220423
  Serious: Yes (Life-Threatening, Hospitalization)
  Sender: FDA-Public Use
  Company Number: FR-SERVIER-S19006979

PATIENT

DRUGS (5)
  1. ONCASPAR [Suspect]
     Active Substance: PEGASPARGASE
     Indication: Acute lymphocytic leukaemia
     Dosage: 1650 IU (1250 IU/M2) DAILY, ON DAY 12 AND DAY 26
     Route: 042
     Dates: start: 20190603, end: 20190617
  2. VINCRISTINE [Suspect]
     Active Substance: VINCRISTINE
     Indication: Acute lymphocytic leukaemia
     Dosage: 2 MG, ON DAYS 15, 22 AND 29
     Route: 042
     Dates: start: 20190529, end: 20190620
  3. DAUNORUBICIN [Suspect]
     Active Substance: DAUNORUBICIN
     Indication: Acute lymphocytic leukaemia
     Dosage: 40 MG, ON DAYS 8, 15, 22 AND 29
     Route: 042
     Dates: start: 20190529, end: 20190620
  4. METHOTREXATE [Suspect]
     Active Substance: METHOTREXATE
     Indication: Acute lymphocytic leukaemia
     Dosage: 15 MG,  ON D9, D13, D18, D24
     Route: 037
     Dates: start: 20190530, end: 20190617
  5. DEXAMETHASONE [Suspect]
     Active Substance: DEXAMETHASONE
     Indication: Acute lymphocytic leukaemia
     Dosage: 14 MG, QD, D8 TO D28
     Route: 048
     Dates: start: 20190529, end: 20190619

REACTIONS (4)
  - Peritonitis [Not Recovered/Not Resolved]
  - Septic shock [Not Recovered/Not Resolved]
  - Large intestine perforation [Not Recovered/Not Resolved]
  - Herpes zoster [Unknown]

NARRATIVE: CASE EVENT DATE: 20190622
